FAERS Safety Report 7979004-8 (Version None)
Quarter: 2011Q4

REPORT INFORMATION
  Report Type: 
  Country: None (occurrence: None)
  Receive Date: 20111214
  Receipt Date: 20111205
  Transmission Date: 20120403
  Serious: Yes (Hospitalization)
  Sender: FDA-Public Use
  Company Number: US-BAYER-2011-068145

PATIENT
  Age: 18 Year
  Sex: Female
  Weight: 109 kg

DRUGS (6)
  1. YASMIN [Suspect]
     Indication: CONTRACEPTION
     Dosage: UNK
     Dates: start: 20030301, end: 20070301
  2. SERTRALINE HYDROCHLORIDE [Concomitant]
  3. ANAPROX DS [Concomitant]
  4. ALBUTEROL [Concomitant]
     Route: 055
  5. YASMIN [Suspect]
     Indication: ACNE
  6. ZOLOFT [Concomitant]

REACTIONS (7)
  - DEEP VEIN THROMBOSIS [None]
  - URINARY TRACT INFECTION [None]
  - PAIN IN EXTREMITY [None]
  - OEDEMA PERIPHERAL [None]
  - LOSS OF CONSCIOUSNESS [None]
  - INJURY [None]
  - SYNCOPE [None]
